FAERS Safety Report 8914006 (Version 1)
Quarter: 2012Q4

REPORT INFORMATION
  Report Type: Spontaneous
  Country: US (occurrence: None)
  Receive Date: 20121115
  Receipt Date: 20121115
  Transmission Date: 20130627
  Serious: Yes (Life-Threatening, Hospitalization)
  Sender: FDA-Public Use
  Company Number: None

PATIENT
  Age: 71 Year
  Sex: Female
  Weight: 95.26 kg

DRUGS (2)
  1. LEXAPRO [Suspect]
     Indication: POST-TRAUMATIC STRESS DISORDER
     Dosage: 20mg  1 in PM  po
     Route: 048
     Dates: start: 20120524, end: 20120615
  2. LEXAPRO [Suspect]
     Indication: DEPRESSION
     Dosage: 20mg  1 in PM  po
     Route: 048
     Dates: start: 20120524, end: 20120615

REACTIONS (10)
  - Product substitution issue [None]
  - Nausea [None]
  - Blood pressure increased [None]
  - Heart rate increased [None]
  - Hyperhidrosis [None]
  - Nightmare [None]
  - Crying [None]
  - Insomnia [None]
  - Chest discomfort [None]
  - Hypersensitivity [None]
